FAERS Safety Report 23750077 (Version 1)
Quarter: 2024Q2

REPORT INFORMATION
  Report Type: Report from Study
  Country: CA (occurrence: CA)
  Receive Date: 20240417
  Receipt Date: 20240417
  Transmission Date: 20240715
  Serious: No
  Sender: FDA-Public Use
  Company Number: CA-TAKEDA-2024TUS033991

PATIENT
  Sex: Female

DRUGS (10)
  1. VEDOLIZUMAB [Suspect]
     Active Substance: VEDOLIZUMAB
     Indication: Colitis ulcerative
     Dosage: 300 MILLIGRAM
     Route: 042
     Dates: start: 20240328
  2. MERCAPTOPURINE [Concomitant]
     Active Substance: MERCAPTOPURINE
     Dosage: 100 MILLIGRAM, QD
     Route: 048
  3. MERCAPTOPURINE [Concomitant]
     Active Substance: MERCAPTOPURINE
     Dosage: UNK UNK, QD
     Dates: start: 2022
  4. MERCAPTOPURINE [Concomitant]
     Active Substance: MERCAPTOPURINE
     Dosage: 125 MILLIGRAM, QD
  5. Salofalk [Concomitant]
     Dosage: 500 MILLIGRAM, BID
     Dates: start: 1991
  6. Salofalk [Concomitant]
     Dosage: 1 GRAM, QD
     Dates: start: 202402
  7. Salofalk [Concomitant]
     Dosage: 1 GRAM, BID
     Route: 048
  8. Salofalk [Concomitant]
     Dosage: 2 GRAM, QD
     Route: 048
  9. SYNTHROID [Concomitant]
     Active Substance: LEVOTHYROXINE SODIUM
     Dosage: UNK
  10. PRISTIQ EXTENDED-RELEASE [Concomitant]
     Active Substance: DESVENLAFAXINE SUCCINATE
     Dosage: UNK

REACTIONS (1)
  - No adverse event [Unknown]
